FAERS Safety Report 18120056 (Version 1)
Quarter: 2020Q3

REPORT INFORMATION
  Report Type: Spontaneous
  Country: US (occurrence: US)
  Receive Date: 20200806
  Receipt Date: 20200806
  Transmission Date: 20201103
  Serious: No
  Sender: FDA-Public Use
  Company Number: US-BAUSCH-BL-2020-021868

PATIENT
  Age: 53 Year
  Sex: Female

DRUGS (2)
  1. LUMIFY [Suspect]
     Active Substance: BRIMONIDINE TARTRATE
     Indication: OCULAR HYPERAEMIA
     Dosage: START DATE: /JUL/2020 (ABOUT A WEEK AGO FROM THE DATE OF REPORT),1 DROP IN BOTH EYES DAILY
     Route: 047
     Dates: start: 202007, end: 202007
  2. LUMIFY [Suspect]
     Active Substance: BRIMONIDINE TARTRATE
     Dosage: START DATE:ABOUT 2 DAYS AGO FROM THE DATE OF REPORT,1 DROP IN BOTH EYES TWICE DAILY X 1 DAY
     Route: 047
     Dates: start: 202007

REACTIONS (2)
  - Ocular hyperaemia [Not Recovered/Not Resolved]
  - Accidental exposure to product [Unknown]

NARRATIVE: CASE EVENT DATE: 202007
